FAERS Safety Report 4554341-8 (Version None)
Quarter: 2004Q4

REPORT INFORMATION
  Report Type: 
  Country: None (occurrence: None)
  Receive Date: 20041227
  Receipt Date: 20041004
  Transmission Date: 20050328
  Serious: No
  Sender: FDA-Public Use
  Company Number: 04P-163-0275910-00

PATIENT
  Age: 65 Year
  Sex: Female

DRUGS (8)
  1. HUMIRA [Suspect]
     Indication: RHEUMATOID ARTHRITIS
     Dosage: 40 MG, 1 IN 2 WK, SUBCUTANEOUS
     Route: 058
     Dates: start: 20030901
  2. GLUCOPHAGE [Concomitant]
  3. ROSIGLITAZONE MALEATE [Concomitant]
  4. MYCARDIS HCT [Concomitant]
  5. AMOXICILLIN [Concomitant]
  6. BUCINDOLOL HYDROCHLORIDE [Concomitant]
  7. ACAON [Concomitant]
  8. ASPIRIN [Concomitant]

REACTIONS (1)
  - TOOTH ABSCESS [None]
